FAERS Safety Report 11061229 (Version 1)
Quarter: 2015Q2

REPORT INFORMATION
  Report Type: Spontaneous
  Country: US (occurrence: None)
  Receive Date: 20150423
  Receipt Date: 20150423
  Transmission Date: 20150821
  Serious: Yes (Other)
  Sender: FDA-Public Use
  Company Number: None

PATIENT

DRUGS (1)
  1. IMIQUIMOD. [Suspect]
     Active Substance: IMIQUIMOD
     Dates: start: 20150402, end: 20150403

REACTIONS (2)
  - Eye irritation [None]
  - Retinal detachment [None]

NARRATIVE: CASE EVENT DATE: 20150402
